FAERS Safety Report 25657958 (Version 1)
Quarter: 2025Q3

REPORT INFORMATION
  Report Type: Report from Study
  Country: IN (occurrence: IN)
  Receive Date: 20250808
  Receipt Date: 20250808
  Transmission Date: 20251020
  Serious: Yes (Other)
  Sender: ROCHE
  Company Number: IN-002147023-NVSC2025IN123361

PATIENT
  Sex: Female

DRUGS (1)
  1. RANIBIZUMAB [Suspect]
     Active Substance: RANIBIZUMAB
     Indication: Age-related macular degeneration
     Route: 050
     Dates: start: 20250128

REACTIONS (7)
  - Retinal haemorrhage [Unknown]
  - Retinal drusen [Unknown]
  - Polypoidal choroidal vasculopathy [Unknown]
  - Iridocyclitis [Unknown]
  - Pseudophakia [Unknown]
  - Retinal pigment epithelium change [Unknown]
  - Vitreous adhesions [Unknown]
